FAERS Safety Report 12622322 (Version 1)
Quarter: 2016Q3

REPORT INFORMATION
  Report Type: Spontaneous
  Country: US (occurrence: US)
  Receive Date: 20160804
  Receipt Date: 20160804
  Transmission Date: 20161109
  Serious: No
  Sender: FDA-Public Use
  Company Number: US-GLAXOSMITHKLINE-US2016108748

PATIENT
  Age: 55 Year
  Sex: Female

DRUGS (1)
  1. VOLTAREN [Suspect]
     Active Substance: DICLOFENAC SODIUM
     Indication: ANKLE FRACTURE
     Dosage: UNK
     Dates: start: 20160722, end: 20160722

REACTIONS (3)
  - Drug administered at inappropriate site [Unknown]
  - Product quality issue [Unknown]
  - Intentional product misuse [Unknown]
